FAERS Safety Report 5001506-7 (Version None)
Quarter: 2006Q2

REPORT INFORMATION
  Report Type: 
  Country: None (occurrence: None)
  Receive Date: 20060512
  Receipt Date: 20060505
  Transmission Date: 20061013
  Serious: Yes (Other)
  Sender: FDA-Public Use
  Company Number: BW-BOEHRINGER INGELHEIM PHARMACEUTICALS, INC.-2006-BP-05088BP

PATIENT
  Sex: Female

DRUGS (3)
  1. VIRAMUNE [Suspect]
     Indication: HIV INFECTION
     Dates: start: 20040429
  2. STAVUDINE [Suspect]
     Indication: HIV INFECTION
     Dates: start: 20040429
  3. LAMIVUDINE [Suspect]
     Indication: HIV INFECTION
     Dates: start: 20040429

REACTIONS (1)
  - PANCREATITIS [None]
